FAERS Safety Report 6599244-2 (Version None)
Quarter: 2010Q1

REPORT INFORMATION
  Report Type: 
  Country: None (occurrence: None)
  Receive Date: 20100224
  Receipt Date: 20100216
  Transmission Date: 20100710
  Serious: Yes (Other)
  Sender: FDA-Public Use
  Company Number: PHHY2010DE08999

PATIENT
  Sex: Male

DRUGS (1)
  1. EXELON [Suspect]
     Dosage: 9.5 MG PER 24 HOURS
     Route: 062
     Dates: start: 20091124

REACTIONS (3)
  - DERMATITIS BULLOUS [None]
  - ERYTHEMA [None]
  - PRURITUS [None]
